FAERS Safety Report 20258517 (Version 1)
Quarter: 2021Q4

REPORT INFORMATION
  Report Type: Spontaneous
  Country: US (occurrence: US)
  Receive Date: 20211230
  Receipt Date: 20211230
  Transmission Date: 20220303
  Serious: Yes (Other)
  Sender: FDA-Public Use
  Company Number: US-BRISTOL-MYERS SQUIBB COMPANY-BMS-2021-142635

PATIENT
  Sex: Female

DRUGS (1)
  1. ORENCIA [Suspect]
     Active Substance: ABATACEPT
     Indication: Product used for unknown indication
     Dosage: UNK
     Route: 058

REACTIONS (8)
  - Renal failure [Unknown]
  - Rheumatoid arthritis [Unknown]
  - Ankle fracture [Unknown]
  - Fall [Unknown]
  - Infection [Unknown]
  - Visual impairment [Unknown]
  - Balance disorder [Unknown]
  - Hand deformity [Unknown]
